FAERS Safety Report 7768343-1 (Version None)
Quarter: 2011Q3

REPORT INFORMATION
  Report Type: 
  Country: None (occurrence: None)
  Receive Date: 20110922
  Receipt Date: 20110624
  Transmission Date: 20111222
  Serious: Yes (Other)
  Sender: FDA-Public Use
  Company Number: US-ASTRAZENECA-2011SE38690

PATIENT
  Age: 57 Year
  Sex: Female

DRUGS (8)
  1. CHANTIX [Suspect]
     Indication: EX-TOBACCO USER
     Route: 048
  2. GLYBURIDE [Concomitant]
  3. METFORMIN [Concomitant]
  4. SEROQUEL [Suspect]
     Indication: BIPOLAR DISORDER
     Route: 048
     Dates: start: 20090101, end: 20110501
  5. SUBOXONE [Concomitant]
  6. CHANTIX [Suspect]
     Route: 048
     Dates: start: 20110531
  7. NICOTINE [Concomitant]
  8. CAFFEINE [Concomitant]

REACTIONS (5)
  - DEPRESSION [None]
  - NIGHTMARE [None]
  - SOMNOLENCE [None]
  - NAUSEA [None]
  - CONSTIPATION [None]
